FAERS Safety Report 4718017-6 (Version None)
Quarter: 2005Q3

REPORT INFORMATION
  Report Type: 
  Country: None (occurrence: None)
  Receive Date: 20050718
  Receipt Date: 20050311
  Transmission Date: 20060218
  Serious: No
  Sender: FDA-Public Use
  Company Number: 2005000537

PATIENT
  Age: 68 Year
  Sex: Female
  Weight: 49.8957 kg

DRUGS (5)
  1. TARCEVA [Suspect]
     Indication: NON-SMALL CELL LUNG CANCER
     Dosage: 150 MG (QD), ORAL
     Route: 048
     Dates: start: 20041211
  2. CELEXA [Concomitant]
  3. LORAZEPAM [Concomitant]
  4. LANOXIN [Concomitant]
  5. ATENOLOL [Concomitant]

REACTIONS (2)
  - FATIGUE [None]
  - NASOPHARYNGITIS [None]
